FAERS Safety Report 10177391 (Version 2)
Quarter: 2014Q2

REPORT INFORMATION
  Report Type: Spontaneous
  Country: US (occurrence: US)
  Receive Date: 20140516
  Receipt Date: 20140516
  Transmission Date: 20141212
  Serious: No
  Sender: FDA-Public Use
  Company Number: US-TARO-2014P1001859

PATIENT
  Age: 64 Year
  Sex: Male
  Weight: 111.13 kg

DRUGS (8)
  1. CLORAZEPATE DIPOTASSIUM TABLETS USP 7.5 MG [Suspect]
     Indication: GENERALISED ANXIETY DISORDER
     Route: 048
     Dates: start: 1994
  2. CLORAZEPATE DIPOTASSIUM TABLETS USP 7.5 MG [Suspect]
     Indication: GENERALISED ANXIETY DISORDER
     Route: 048
     Dates: start: 1994
  3. CLORAZEPATE DIPOTASSIUM TABLETS USP 7.5 MG (MYLAN) [Suspect]
     Indication: GENERALISED ANXIETY DISORDER
  4. AVAPRO [Concomitant]
  5. LOPID [Concomitant]
  6. ZETIA [Concomitant]
  7. MULTIVITAMIN [Concomitant]
  8. REMERON [Concomitant]

REACTIONS (2)
  - Drug ineffective [Unknown]
  - Product substitution issue [Unknown]
